FAERS Safety Report 18990716 (Version 1)
Quarter: 2021Q1

REPORT INFORMATION
  Report Type: Spontaneous
  Country: US (occurrence: US)
  Receive Date: 20210310
  Receipt Date: 20210310
  Transmission Date: 20210420
  Serious: No
  Sender: FDA-Public Use
  Company Number: US-CURIUM-2021000045

PATIENT
  Age: 18 Year
  Sex: Female
  Weight: 72 kg

DRUGS (6)
  1. DESOGESTREL?ETHINYL?ESTRADIOL [Concomitant]
     Indication: PRODUCT USED FOR UNKNOWN INDICATION
     Route: 048
  2. PERTECHNETATE (99MTC) SODIUM (PERTECHNETATE (99MTC) SODIUM [Concomitant]
     Indication: VENTILATION/PERFUSION SCAN
     Route: 051
     Dates: start: 20210127, end: 20210127
  3. KETOROLAC [Concomitant]
     Active Substance: KETOROLAC TROMETHAMINE
     Indication: PRODUCT USED FOR UNKNOWN INDICATION
     Route: 042
  4. ACETAMINOPHEN. [Concomitant]
     Active Substance: ACETAMINOPHEN
     Indication: PRODUCT USED FOR UNKNOWN INDICATION
     Route: 048
  5. PULMOTECH MAA [Suspect]
     Active Substance: TECHNETIUM TC-99M ALBUMIN AGGREGATED
     Indication: VENTILATION/PERFUSION SCAN
     Route: 051
     Dates: start: 20210127, end: 20210127
  6. LACTATED RINGER 1000 ML [Concomitant]
     Indication: PRODUCT USED FOR UNKNOWN INDICATION
     Route: 042

REACTIONS (1)
  - Ventilation/perfusion scan abnormal [Recovered/Resolved]

NARRATIVE: CASE EVENT DATE: 20210127
